FAERS Safety Report 5819397-0 (Version None)
Quarter: 2008Q3

REPORT INFORMATION
  Report Type: 
  Country: None (occurrence: None)
  Receive Date: 20080717
  Receipt Date: 20080711
  Transmission Date: 20090109
  Serious: Yes (Other)
  Sender: FDA-Public Use
  Company Number: 056-20785-08070604

PATIENT
  Age: 25 Year
  Sex: Female
  Weight: 53 kg

DRUGS (3)
  1. THALIDOMIDE [Suspect]
     Indication: SYSTEMIC LUPUS ERYTHEMATOSUS
     Dosage: 50 MG, 1 IN 1 D, ORAL
     Route: 048
     Dates: start: 20080611, end: 20080711
  2. CORTANCYL (PREDNISONE) [Concomitant]
  3. IMPLANON [Concomitant]

REACTIONS (1)
  - PREGNANCY TEST POSITIVE [None]
